FAERS Safety Report 8949806 (Version 9)
Quarter: 2013Q4

REPORT INFORMATION
  Report Type: Report from Study
  Country: ES (occurrence: ES)
  Receive Date: 20121206
  Receipt Date: 20131205
  Transmission Date: 20140711
  Serious: Yes (Hospitalization)
  Sender: FDA-Public Use
  Company Number: ES-ROCHE-1162436

PATIENT
  Age: 94 Year
  Sex: Female
  Weight: 51 kg

DRUGS (9)
  1. VISMODEGIB [Suspect]
     Indication: BASAL CELL CARCINOMA
     Dosage: LAST DOSE PRIOR TO SAE: 25/NOV/2012
     Route: 048
     Dates: start: 20120614, end: 20121126
  2. CAPTOPRIL [Concomitant]
     Indication: HYPERTENSION
     Route: 065
     Dates: start: 20120712, end: 20120712
  3. AZITHROMYCIN [Concomitant]
     Indication: BRONCHITIS
     Route: 065
     Dates: start: 20120829, end: 20120901
  4. AUREOMYCIN OINTMENT [Concomitant]
     Dosage: 1 APPLICATION PER DAY
     Route: 065
     Dates: start: 20120906, end: 20121005
  5. AZITROMICINA [Concomitant]
     Indication: BRONCHITIS
     Route: 065
     Dates: start: 20120829, end: 20120901
  6. ENALAPRIL [Concomitant]
     Indication: HYPERTENSION
     Route: 065
     Dates: start: 200001
  7. SALMETEROL [Concomitant]
     Indication: ASTHMA
     Route: 065
     Dates: start: 200001
  8. METFORMIN [Concomitant]
     Indication: DIABETES MELLITUS
     Route: 065
     Dates: start: 201201
  9. VALACICLOVIR [Concomitant]
     Indication: HERPES ZOSTER
     Route: 065
     Dates: start: 20120605

REACTIONS (1)
  - Atrioventricular block [Recovered/Resolved]
